FAERS Safety Report 9458258 (Version 1)
Quarter: 2013Q3

REPORT INFORMATION
  Report Type: Spontaneous
  Country: US (occurrence: US)
  Receive Date: 20130814
  Receipt Date: 20130814
  Transmission Date: 20140515
  Serious: Yes (Other)
  Sender: FDA-Public Use
  Company Number: US-PFIZER INC-2013233349

PATIENT
  Age: 57 Year
  Sex: Female

DRUGS (9)
  1. NEURONTIN [Suspect]
     Dosage: 600 MG, 3X/DAY
     Route: 048
  2. GABAPENTIN [Suspect]
     Dosage: 300 MG, 3X/DAY
     Route: 048
  3. LYRICA [Suspect]
     Indication: PAIN
     Dosage: UNK
  4. XANAX [Suspect]
     Dosage: ONCE A DAY
  5. PERCOCET [Suspect]
     Indication: BACK PAIN
     Dosage: OXYCODONE HYDROCHLORIDE 10 MG, PARACETAMOL 325 MG TAKE 1 TAB EVERY 4 HOURS
     Route: 048
  6. LEXAPRO [Suspect]
     Dosage: 20 MG, 1X/DAY (DAILY)
     Route: 048
  7. PROZAC [Suspect]
     Dosage: UNK
  8. CYMBALTA [Concomitant]
  9. ASPIRIN [Concomitant]

REACTIONS (2)
  - Panic attack [Unknown]
  - Melanocytic naevus [Unknown]
